FAERS Safety Report 10496880 (Version 2)
Quarter: 2015Q2

REPORT INFORMATION
  Report Type: Spontaneous
  Country: US (occurrence: US)
  Receive Date: 20141006
  Receipt Date: 20150408
  Transmission Date: 20150821
  Serious: No
  Sender: FDA-Public Use
  Company Number: US-BIOGENIDEC-2014BI102835

PATIENT
  Sex: Male

DRUGS (1)
  1. AVONEX [Suspect]
     Active Substance: INTERFERON BETA-1A
     Indication: MULTIPLE SCLEROSIS
     Route: 030
     Dates: start: 19990901, end: 20000101

REACTIONS (10)
  - Optic neuritis [Not Recovered/Not Resolved]
  - Balance disorder [Not Recovered/Not Resolved]
  - Peroneal nerve palsy [Not Recovered/Not Resolved]
  - Tremor [Not Recovered/Not Resolved]
  - Contusion [Unknown]
  - White blood cell count decreased [Recovered/Resolved]
  - Herpes zoster [Recovered/Resolved]
  - Hypertonic bladder [Not Recovered/Not Resolved]
  - Fall [Recovered/Resolved]
  - Central nervous system lesion [Unknown]
